FAERS Safety Report 21297572 (Version 17)
Quarter: 2025Q1

REPORT INFORMATION
  Report Type: Spontaneous
  Country: US (occurrence: US)
  Receive Date: 20220906
  Receipt Date: 20250304
  Transmission Date: 20250409
  Serious: Yes (Disabling, Other)
  Sender: PFIZER
  Company Number: US-PFIZER INC-2019546059

PATIENT
  Age: 77 Year
  Sex: Female
  Weight: 56.2 kg

DRUGS (3)
  1. PREMARIN [Suspect]
     Active Substance: ESTROGENS, CONJUGATED
     Dosage: 1 G, TWICE A WEEK
     Route: 067
     Dates: start: 20191213
  2. PREMARIN [Suspect]
     Active Substance: ESTROGENS, CONJUGATED
     Dosage: 0.5 G, 2X/WEEK (2 TIMES WEEKLY/ ONCE BEDTIME)
     Route: 067
  3. PREMARIN [Suspect]
     Active Substance: ESTROGENS, CONJUGATED
     Dosage: INSERT 0.5 APPLICATOR (S) FULL EVERY DAY
     Route: 067

REACTIONS (8)
  - Osteoarthritis [Unknown]
  - Spinal operation [Unknown]
  - Movement disorder [Unknown]
  - Anxiety [Unknown]
  - Product prescribing error [Unknown]
  - Intentional product misuse [Unknown]
  - Off label use [Unknown]
  - Off label use [Unknown]

NARRATIVE: CASE EVENT DATE: 20191213
